FAERS Safety Report 7152537-2 (Version None)
Quarter: 2010Q4

REPORT INFORMATION
  Report Type: 
  Country: None (occurrence: None)
  Receive Date: 20101213
  Receipt Date: 20101203
  Transmission Date: 20110411
  Serious: Yes (Other)
  Sender: FDA-Public Use
  Company Number: US-TEVA-258992USA

PATIENT
  Sex: Female

DRUGS (7)
  1. COPAXONE [Suspect]
     Indication: MULTIPLE SCLEROSIS
     Route: 058
     Dates: start: 20100901
  2. PROPRANOLOL [Concomitant]
  3. NAPROXEN [Concomitant]
  4. LISINOPRIL [Concomitant]
  5. ERGOCALCIFEROL [Concomitant]
  6. SALBUTAMOL [Concomitant]
  7. OMEPRAZOLE [Concomitant]

REACTIONS (1)
  - BREAST CANCER [None]
